FAERS Safety Report 17264876 (Version 1)
Quarter: 2020Q1

REPORT INFORMATION
  Report Type: Other
  Country: US (occurrence: US)
  Receive Date: 20200113
  Receipt Date: 20200113
  Transmission Date: 20200409
  Serious: No
  Sender: FDA-Public Use
  Company Number: US-ASCENT PHARMACEUTICALS, INC.-2078919

PATIENT
  Age: 53 Year
  Sex: Female
  Weight: 68.18 kg

DRUGS (3)
  1. LYRICA [Concomitant]
     Active Substance: PREGABALIN
     Route: 065
  2. OXYCODONE AND ACETAMINOPHEN [Suspect]
     Active Substance: ACETAMINOPHEN\OXYCODONE HYDROCHLORIDE
     Indication: PAIN
     Route: 048
     Dates: start: 20191004
  3. PREVACID [Concomitant]
     Active Substance: LANSOPRAZOLE
     Route: 065

REACTIONS (4)
  - Malaise [Recovered/Resolved]
  - Speech disorder [Recovered/Resolved]
  - Muscle twitching [Recovered/Resolved]
  - Drug ineffective [Recovered/Resolved]

NARRATIVE: CASE EVENT DATE: 20191004
